FAERS Safety Report 23154752 (Version 1)
Quarter: 2023Q4

REPORT INFORMATION
  Report Type: Other
  Country: None (occurrence: GB)
  Receive Date: 20231107
  Receipt Date: 20231107
  Transmission Date: 20240110
  Serious: Yes (Other)
  Sender: FDA-Public Use
  Company Number: GB-Breckenridge Pharmaceutical, Inc.-2147931

PATIENT
  Sex: Male

DRUGS (2)
  1. TETRACYCLINE [Suspect]
     Active Substance: TETRACYCLINE
     Indication: Acne
     Route: 048
  2. ADAPALENE\BENZOYL PEROXIDE [Concomitant]
     Active Substance: ADAPALENE\BENZOYL PEROXIDE

REACTIONS (3)
  - Hypoglycaemia [Recovered/Resolved]
  - Dizziness [Recovered/Resolved]
  - Chest discomfort [Recovered/Resolved]
